FAERS Safety Report 20406462 (Version 1)
Quarter: 2022Q1

REPORT INFORMATION
  Report Type: Spontaneous
  Country: US (occurrence: None)
  Receive Date: 20220131
  Receipt Date: 20220131
  Transmission Date: 20220424
  Serious: No
  Sender: FDA-Public Use
  Company Number: None

PATIENT
  Age: 31 Year
  Sex: Female
  Weight: 90 kg

DRUGS (3)
  1. FAMOTIDINE [Suspect]
     Active Substance: FAMOTIDINE
     Indication: Ulcer
     Dosage: FREQUENCY : DAILY;?
     Route: 048
     Dates: start: 20220130, end: 20220130
  2. BENADRYL [Concomitant]
     Active Substance: DIPHENHYDRAMINE HYDROCHLORIDE
  3. ASPIRIN [Concomitant]
     Active Substance: ASPIRIN

REACTIONS (7)
  - Dehydration [None]
  - Muscular weakness [None]
  - Feeling hot [None]
  - Musculoskeletal stiffness [None]
  - Dry mouth [None]
  - Melaena [None]
  - Abdominal pain upper [None]

NARRATIVE: CASE EVENT DATE: 20220130
